FAERS Safety Report 11677793 (Version 1)
Quarter: 2015Q4

REPORT INFORMATION
  Report Type: Spontaneous
  Country: US (occurrence: US)
  Receive Date: 20151027
  Receipt Date: 20151027
  Transmission Date: 20160304
  Serious: No
  Sender: FDA-Public Use
  Company Number: US-ELI_LILLY_AND_COMPANY-US201010006031

PATIENT
  Age: 61 Year
  Sex: Female
  Weight: 43.08 kg

DRUGS (1)
  1. FORTEO [Suspect]
     Active Substance: TERIPARATIDE
     Indication: OSTEOPOROSIS
     Dates: start: 201005

REACTIONS (3)
  - Arthralgia [Unknown]
  - Pain [Unknown]
  - Pain in extremity [Unknown]
